FAERS Safety Report 9731290 (Version 3)
Quarter: 2013Q4

REPORT INFORMATION
  Report Type: Spontaneous
  Country: JP (occurrence: JP)
  Receive Date: 20131203
  Receipt Date: 20131223
  Transmission Date: 20140711
  Serious: No
  Sender: FDA-Public Use
  Company Number: JP-ABBVIE-12P-087-0943252-00

PATIENT
  Age: 48 Year
  Sex: Female
  Weight: 49 kg

DRUGS (3)
  1. HUMIRA 40 MG/ 0.8 ML PRE-FILLED SYRINGE [Suspect]
     Indication: CROHN^S DISEASE
     Route: 058
     Dates: start: 20101219, end: 20101219
  2. HUMIRA 40 MG/ 0.8 ML PRE-FILLED SYRINGE [Suspect]
  3. HUMIRA 40 MG/ 0.8 ML PRE-FILLED SYRINGE [Suspect]
     Dates: end: 20120524

REACTIONS (3)
  - Hypergammaglobulinaemia [Not Recovered/Not Resolved]
  - Arthralgia [Unknown]
  - Hypergammaglobulinaemia benign monoclonal [Unknown]
